FAERS Safety Report 13640841 (Version 1)
Quarter: 2017Q2

REPORT INFORMATION
  Report Type: Spontaneous
  Country: US (occurrence: US)
  Receive Date: 20170612
  Receipt Date: 20170612
  Transmission Date: 20170830
  Serious: No
  Sender: FDA-Public Use
  Company Number: US-TEVA-692873USA

PATIENT
  Sex: Male
  Weight: 103.97 kg

DRUGS (1)
  1. TESTOSTERONE. [Suspect]
     Active Substance: TESTOSTERONE
     Indication: BLOOD TESTOSTERONE DECREASED
     Dosage: 200 MG/ML

REACTIONS (3)
  - Nausea [Unknown]
  - Malaise [Unknown]
  - Headache [Unknown]
